FAERS Safety Report 8138873-1 (Version None)
Quarter: 2012Q1

REPORT INFORMATION
  Report Type: 
  Country: None (occurrence: None)
  Receive Date: 20120215
  Receipt Date: 20120210
  Transmission Date: 20120608
  Serious: Yes (Death)
  Sender: FDA-Public Use
  Company Number: JP-SANOFI-AVENTIS-2012SA007169

PATIENT
  Age: 59 Year
  Sex: Female
  Weight: 49 kg

DRUGS (5)
  1. CHLOR-TRIMETON [Concomitant]
  2. THERAPEUTIC RADIOPHARMACEUTICALS [Suspect]
     Dosage: 2 GY FOR 5 CONSECUTIVE DAYS PER WEEK
     Route: 065
     Dates: start: 20041018, end: 20041220
  3. ZOFRAN [Concomitant]
  4. TAXOTERE [Suspect]
     Dosage: ON DAY 1, EVERY 4 WEEKS
     Route: 042
     Dates: start: 20041014
  5. CARBOPLATIN [Suspect]
     Dosage: AUC- 5, EVERY 4 WEEKS
     Route: 042
     Dates: start: 20041014

REACTIONS (3)
  - RESPIRATORY FAILURE [None]
  - PYREXIA [None]
  - INTERSTITIAL LUNG DISEASE [None]
